FAERS Safety Report 13405758 (Version 2)
Quarter: 2017Q2

REPORT INFORMATION
  Report Type: Report from Study
  Country: US (occurrence: US)
  Receive Date: 20170405
  Receipt Date: 20170419
  Transmission Date: 20170830
  Serious: Yes (Death, Hospitalization, Other)
  Sender: FDA-Public Use
  Company Number: PHEH2017US009820

PATIENT
  Sex: Female

DRUGS (1)
  1. PROMACTA [Suspect]
     Active Substance: ELTROMBOPAG OLAMINE
     Indication: THROMBOCYTOPENIA
     Dosage: 150 MG, QD
     Route: 048
     Dates: start: 20151101, end: 20170301

REACTIONS (3)
  - Myelodysplastic syndrome [Unknown]
  - Pneumonia [Fatal]
  - Acute myeloid leukaemia [Fatal]
